FAERS Safety Report 11990455 (Version 1)
Quarter: 2016Q1

REPORT INFORMATION
  Report Type: Spontaneous
  Country: US (occurrence: US)
  Receive Date: 20160202
  Receipt Date: 20160202
  Transmission Date: 20160526
  Serious: Yes (Other)
  Sender: FDA-Public Use
  Company Number: US-BAYER-2016-015737

PATIENT
  Age: 32 Year
  Sex: Male
  Weight: 58.96 kg

DRUGS (4)
  1. AFRIN NO DRIP SEVERE CONGESTION [Suspect]
     Active Substance: OXYMETAZOLINE HYDROCHLORIDE
     Indication: SINUSITIS
     Dosage: 1 DF, UNK
     Dates: start: 20160124
  2. TEGRETOL [Concomitant]
     Active Substance: CARBAMAZEPINE
  3. CITALOPRAM [Concomitant]
     Active Substance: CITALOPRAM HYDROBROMIDE
  4. AFRIN NO DRIP SEVERE CONGESTION [Suspect]
     Active Substance: OXYMETAZOLINE HYDROCHLORIDE
     Indication: SINUS CONGESTION
     Dosage: 1 DF, ONCE ON 23 AND ONCE ON 24-JAN-2016
     Route: 045
     Dates: start: 20160123

REACTIONS (3)
  - Epistaxis [Recovered/Resolved]
  - Product use issue [None]
  - Epistaxis [Recovered/Resolved]

NARRATIVE: CASE EVENT DATE: 20160123
